FAERS Safety Report 26130584 (Version 1)
Quarter: 2025Q4

REPORT INFORMATION
  Report Type: Spontaneous
  Country: US (occurrence: None)
  Receive Date: 20251205
  Receipt Date: 20251205
  Transmission Date: 20260117
  Serious: Yes (Hospitalization)
  Sender: FDA-CTU
  Company Number: None

PATIENT
  Age: 65 Year
  Sex: Female

DRUGS (1)
  1. ZELBORAF [Suspect]
     Active Substance: VEMURAFENIB
     Dosage: 60MG DAILY DAYS 1 TO 21 OF 28 DAY CYCLE?

REACTIONS (2)
  - Hospitalisation [None]
  - Therapy interrupted [None]
